FAERS Safety Report 8916663 (Version 3)
Quarter: 2013Q3

REPORT INFORMATION
  Report Type: Spontaneous
  Country: US (occurrence: US)
  Receive Date: 20121120
  Receipt Date: 20130725
  Transmission Date: 20140515
  Serious: Yes (Hospitalization, Disabling, Other)
  Sender: FDA-Public Use
  Company Number: US-009507513-1211USA007923

PATIENT
  Sex: Female
  Weight: 59.41 kg

DRUGS (5)
  1. FOSAMAX [Suspect]
     Indication: OSTEOPOROSIS
     Dosage: 10 MG, UNK
     Route: 048
     Dates: start: 199805, end: 200204
  2. FOSAMAX [Suspect]
     Dosage: 70 MG, QW
     Route: 048
     Dates: start: 200205
  3. ALENDRONATE SODIUM [Suspect]
     Indication: OSTEOPOROSIS
     Dosage: 70 MG, UNK
     Route: 048
     Dates: start: 200802, end: 200905
  4. HORMONES (UNSPECIFIED) [Concomitant]
     Dosage: UNK
     Dates: start: 1992, end: 2002
  5. PREMPRO [Concomitant]
     Dosage: UNK
     Dates: start: 19980402

REACTIONS (25)
  - Open reduction of fracture [Unknown]
  - Ankle arthroplasty [Unknown]
  - Osteonecrosis of jaw [Unknown]
  - Dental caries [Unknown]
  - Dental caries [Unknown]
  - Hypertension [Not Recovered/Not Resolved]
  - Fistula discharge [Unknown]
  - Sinusitis [Unknown]
  - Spinal osteoarthritis [Unknown]
  - Cervical radiculopathy [Unknown]
  - Intervertebral disc displacement [Unknown]
  - Intervertebral disc degeneration [Unknown]
  - Dental caries [Unknown]
  - Alveoloplasty [Unknown]
  - Alveoloplasty [Unknown]
  - Alveoloplasty [Unknown]
  - Scoliosis [Unknown]
  - Arthritis [Unknown]
  - Endodontic procedure [Unknown]
  - Osteopenia [Unknown]
  - Fistula discharge [Unknown]
  - Limb injury [Unknown]
  - Joint injury [Unknown]
  - Fall [Unknown]
  - Mouth ulceration [Unknown]
